FAERS Safety Report 10977670 (Version 1)
Quarter: 2015Q1

REPORT INFORMATION
  Report Type: Spontaneous
  Country: GB (occurrence: None)
  Receive Date: 20150330
  Receipt Date: 20150330
  Transmission Date: 20150721
  Serious: Yes (Life-Threatening, Other)
  Sender: FDA-Public Use
  Company Number: FK201501464

PATIENT
  Age: 52 Year
  Sex: Female
  Weight: 59 kg

DRUGS (6)
  1. AVASTIN [Suspect]
     Active Substance: BEVACIZUMAB
     Indication: CERVIX CARCINOMA
     Dosage: 1 IN 3 WK?(NOT OTHERWISE SPECIFIED)
     Route: 042
     Dates: start: 20150116
  2. FRAGMIN [Suspect]
     Active Substance: DALTEPARIN SODIUM
     Indication: DEEP VEIN THROMBOSIS
     Dosage: 15000, SUBCUTANEOUS
     Route: 058
     Dates: start: 20150101
  3. DOMPERIDONE [Concomitant]
     Active Substance: DOMPERIDONE
  4. CARBOPLATIN (MANUFACTURER UNKNOWN) (CARBOPLATIN) (CARBOPLATIN) [Suspect]
     Active Substance: CARBOPLATIN
     Indication: CERVIX CARCINOMA
     Dosage: 1 IN 3 WK?(NOT OTHERWISE SPECIFIED)
     Route: 042
     Dates: start: 20150116
  5. TANOL (CALAMINE/DIPHENHYDRAMINE HYDROCHLORIDE /MENTHOL / ZINC OXIDE) (CALAMINE/DIPHENHYDRAMINE HYDROCHLORIDE/MENTHOL/ZINC OXIDE) [Suspect]
     Active Substance: CALAMINE\DIPHENHYDRAMINE HYDROCHLORIDE\MENTHOL\ZINC OXIDE
     Indication: CERVIX CARCINOMA
     Dosage: 312, 1 IN 3 WK?(NOT OTHERWISE SPECIFIED)
     Route: 042
  6. ONDANSETRON [Concomitant]
     Active Substance: ONDANSETRON

REACTIONS (2)
  - Vaginal haemorrhage [None]
  - Malaise [None]

NARRATIVE: CASE EVENT DATE: 20150117
